FAERS Safety Report 23196715 (Version 1)
Quarter: 2023Q4

REPORT INFORMATION
  Report Type: Spontaneous
  Country: MX (occurrence: MX)
  Receive Date: 20231117
  Receipt Date: 20231117
  Transmission Date: 20240110
  Serious: Yes (Death, Other)
  Sender: FDA-Public Use
  Company Number: MX-002147023-NVSC2023MX243167

PATIENT
  Age: 74 Year
  Sex: Female

DRUGS (1)
  1. EXELON [Suspect]
     Active Substance: RIVASTIGMINE TARTRATE
     Indication: Product used for unknown indication
     Dosage: 4.6 MG, QD PATCH 5 (CM2) (EXTENDED RELEASE) (1 PATCH EVERY 24 HOURS)
     Route: 062
     Dates: start: 20230515

REACTIONS (1)
  - Death [Fatal]
